FAERS Safety Report 10971907 (Version 4)
Quarter: 2015Q3

REPORT INFORMATION
  Report Type: Spontaneous
  Country: US (occurrence: US)
  Receive Date: 20150331
  Receipt Date: 20150720
  Transmission Date: 20151125
  Serious: No
  Sender: FDA-Public Use
  Company Number: US-GILEAD-2015-0144443

PATIENT
  Age: 51 Year
  Sex: Male

DRUGS (1)
  1. HARVONI [Suspect]
     Active Substance: LEDIPASVIR\SOFOSBUVIR
     Indication: HEPATITIS C
     Dosage: 1 DF, QD
     Route: 048
     Dates: start: 20150316

REACTIONS (9)
  - Feeling abnormal [Unknown]
  - Somnolence [Unknown]
  - Dysphonia [Unknown]
  - Dizziness [Unknown]
  - Emotional disorder [Unknown]
  - Limb injury [Unknown]
  - Localised infection [Unknown]
  - Fatigue [Unknown]
  - Dry throat [Unknown]

NARRATIVE: CASE EVENT DATE: 20150320
